FAERS Safety Report 4629142-2 (Version None)
Quarter: 2005Q2

REPORT INFORMATION
  Report Type: 
  Country: None (occurrence: None)
  Receive Date: 20050404
  Receipt Date: 20050404
  Transmission Date: 20051028
  Serious: Yes (Hospitalization)
  Sender: FDA-Public Use
  Company Number: None

PATIENT
  Age: 67 Year
  Sex: Female
  Weight: 99 kg

DRUGS (1)
  1. GEMCITABINE [Suspect]
     Indication: PANCREATIC CARCINOMA
     Dosage: 2086MG
     Dates: start: 20050113

REACTIONS (13)
  - ABDOMINAL DISTENSION [None]
  - ASTHENIA [None]
  - ATRIAL FIBRILLATION [None]
  - BILE DUCT STENOSIS [None]
  - DILATATION INTRAHEPATIC DUCT ACQUIRED [None]
  - ESCHERICHIA SEPSIS [None]
  - PANCREAS INFECTION [None]
  - PITTING OEDEMA [None]
  - RESPIRATORY DISTRESS [None]
  - RESPIRATORY FAILURE [None]
  - SEPTIC SHOCK [None]
  - STENT OCCLUSION [None]
  - TACHYCARDIA [None]
